FAERS Safety Report 4881804-8 (Version None)
Quarter: 2006Q1

REPORT INFORMATION
  Report Type: 
  Country: None (occurrence: None)
  Receive Date: 20060112
  Receipt Date: 20060112
  Transmission Date: 20060701
  Serious: Yes (Other)
  Sender: FDA-Public Use
  Company Number: None

PATIENT
  Age: 80 Year
  Sex: Male

DRUGS (1)
  1. LEVAQUIN [Suspect]
     Indication: NOSOCOMIAL INFECTION
     Dosage: 750MG Q24H IV BOLUS
     Route: 040
     Dates: start: 20060104, end: 20060110

REACTIONS (3)
  - CEREBROVASCULAR ACCIDENT [None]
  - CREATININE RENAL CLEARANCE DECREASED [None]
  - GRAND MAL CONVULSION [None]
